FAERS Safety Report 5235361-7 (Version None)
Quarter: 2007Q1

REPORT INFORMATION
  Report Type: 
  Country: None (occurrence: None)
  Receive Date: 20070212
  Receipt Date: 20070130
  Transmission Date: 20070707
  Serious: Yes (Hospitalization)
  Sender: FDA-Public Use
  Company Number: PHBS2007TW02237

PATIENT
  Age: 68 Year
  Sex: Male

DRUGS (2)
  1. BACLOFEN [Suspect]
     Indication: HICCUPS
     Dosage: 5 MG, TID
     Route: 065
  2. FAMOTIDINE [Concomitant]
     Indication: OESOPHAGEAL ULCER
     Dosage: 20 MG, QD
     Route: 065

REACTIONS (14)
  - BLOOD CREATININE INCREASED [None]
  - BLOOD UREA INCREASED [None]
  - COMPUTERISED TOMOGRAM ABNORMAL [None]
  - CONFUSIONAL STATE [None]
  - DEPRESSED LEVEL OF CONSCIOUSNESS [None]
  - GLASGOW COMA SCALE ABNORMAL [None]
  - HAEMOGLOBIN DECREASED [None]
  - HEART RATE INCREASED [None]
  - HYPOREFLEXIA [None]
  - INCOHERENT [None]
  - MUSCULAR WEAKNESS [None]
  - PARESIS [None]
  - TOXIC INDUCED ENCEPHALOPATHY [None]
  - VISION BLURRED [None]
